FAERS Safety Report 9124862 (Version 1)
Quarter: 2013Q1

REPORT INFORMATION
  Report Type: Spontaneous
  Country: CH (occurrence: CH)
  Receive Date: 20130121
  Receipt Date: 20130121
  Transmission Date: 20140127
  Serious: Yes (Hospitalization)
  Sender: FDA-Public Use
  Company Number: CH-BRISTOL-MYERS SQUIBB COMPANY-17281452

PATIENT
  Age: 81 Year
  Sex: Female

DRUGS (8)
  1. TAXOL [Suspect]
     Indication: OVARIAN CANCER
     Dosage: 10 CYCLES;29-NOV-2012 9 TH CYCLE
     Route: 041
     Dates: start: 20120912, end: 20121112
  2. CARBOPLATIN [Suspect]
     Indication: OVARIAN CANCER
     Route: 041
     Dates: start: 20120912, end: 20121112
  3. VANCOMYCIN [Suspect]
     Indication: BACTERIAL INFECTION
     Route: 041
     Dates: start: 20121207, end: 20121213
  4. CLINDAMYCIN [Suspect]
     Indication: BACTERIAL INFECTION
     Route: 048
     Dates: start: 20121214, end: 20121216
  5. METOCLOPRAMIDE [Suspect]
     Indication: PROPHYLACTIC CHEMOTHERAPY
     Route: 040
     Dates: start: 20120912, end: 201211
  6. RANITIDINE [Suspect]
     Indication: PROPHYLACTIC CHEMOTHERAPY
     Route: 048
     Dates: start: 20120912, end: 201211
  7. CLEMASTINE [Suspect]
     Indication: PROPHYLACTIC CHEMOTHERAPY
     Route: 040
     Dates: start: 20120912, end: 201211
  8. DEXAMETHASONE [Suspect]
     Indication: PROPHYLACTIC CHEMOTHERAPY
     Route: 040
     Dates: start: 20120912, end: 20121129

REACTIONS (4)
  - Toxic skin eruption [Recovered/Resolved]
  - Staphylococcal sepsis [Unknown]
  - Device related sepsis [None]
  - Nausea [None]
